FAERS Safety Report 8008620-2 (Version None)
Quarter: 2011Q4

REPORT INFORMATION
  Report Type: 
  Country: None (occurrence: None)
  Receive Date: 20111227
  Receipt Date: 20111221
  Transmission Date: 20120403
  Serious: Yes (Death, Hospitalization)
  Sender: FDA-Public Use
  Company Number: DE-CELGENEUS-062-C5013-11081333

PATIENT
  Age: 79 Year
  Sex: Male
  Weight: 65 kg

DRUGS (10)
  1. LENALIDOMIDE [Suspect]
     Indication: PROSTATE CANCER
     Dosage: 25 MILLIGRAM
     Route: 048
     Dates: start: 20110609, end: 20110720
  2. TEBAMIN [Concomitant]
     Dosage: 240 MILLIGRAM
     Route: 048
     Dates: start: 20080101
  3. DOCETAXEL [Suspect]
     Dosage: 104 MILLIGRAM
     Route: 065
     Dates: start: 20110707, end: 20110811
  4. ALBUTEROL SULFATE [Concomitant]
     Indication: ASTHMA
     Route: 055
     Dates: start: 20010101
  5. THEOPHYLLINE [Concomitant]
     Indication: ASTHMA
     Dosage: 600 MILLIGRAM
     Route: 048
     Dates: start: 20010101
  6. THEOPHYLLINE [Concomitant]
  7. DOCETAXEL [Suspect]
     Indication: PROSTATE CANCER
     Dosage: 135 MILLIGRAM
     Route: 065
     Dates: start: 20110609
  8. PREDNISONE [Suspect]
     Indication: PROSTATE CANCER
     Dosage: 10 MILLIGRAM
     Route: 065
     Dates: start: 20110609
  9. ATMADISC [Concomitant]
     Dosage: 50/100 MCG
     Route: 055
     Dates: start: 20010101
  10. CRATAEGUTT [Concomitant]
     Dosage: 900 MILLIGRAM
     Route: 048
     Dates: start: 20070101

REACTIONS (3)
  - GENERAL PHYSICAL HEALTH DETERIORATION [None]
  - PYREXIA [None]
  - NAUSEA [None]
